FAERS Safety Report 6737584-4 (Version None)
Quarter: 2010Q2

REPORT INFORMATION
  Report Type: 
  Country: None (occurrence: None)
  Receive Date: 20100521
  Receipt Date: 20100521
  Transmission Date: 20101027
  Serious: Yes (Hospitalization)
  Sender: FDA-Public Use
  Company Number: None

PATIENT
  Age: 64 Year
  Sex: Male

DRUGS (1)
  1. CLINDAMYCIN [Suspect]
     Indication: CELLULITIS
     Dosage: 300MG QID PO
     Route: 048

REACTIONS (1)
  - PSEUDOMEMBRANOUS COLITIS [None]
